FAERS Safety Report 10394614 (Version 4)
Quarter: 2014Q3

REPORT INFORMATION
  Report Type: Spontaneous
  Country: FI (occurrence: FI)
  Receive Date: 20140820
  Receipt Date: 20140917
  Transmission Date: 20150326
  Serious: Yes (Hospitalization, Other)
  Sender: FDA-Public Use
  Company Number: FI-AMGEN-FINSP2014059676

PATIENT
  Age: 60 Year
  Sex: Male

DRUGS (2)
  1. ARANESP [Suspect]
     Active Substance: DARBEPOETIN ALFA
     Indication: ANAEMIA
     Dosage: 300 MUG, Q2WK
     Route: 058
     Dates: start: 20130610, end: 20140805
  2. HYDROXYUREA. [Suspect]
     Active Substance: HYDROXYUREA
     Indication: CHRONIC MYELOID LEUKAEMIA
     Dosage: 500 MG, X1/DAY
     Route: 048
     Dates: start: 20130903, end: 20140731

REACTIONS (3)
  - Therapeutic response decreased [Unknown]
  - Anaemia [Not Recovered/Not Resolved]
  - Reticulocytopenia [Unknown]

NARRATIVE: CASE EVENT DATE: 20140521
